FAERS Safety Report 23538851 (Version 2)
Quarter: 2024Q1

REPORT INFORMATION
  Report Type: Spontaneous
  Country: GB (occurrence: GB)
  Receive Date: 20240219
  Receipt Date: 20240319
  Transmission Date: 20240410
  Serious: No
  Sender: FDA-Public Use
  Company Number: GB-BECTON DICKINSON-GB-BD-24-000091

PATIENT

DRUGS (1)
  1. CHLORAPREP ONE-STEP FREPP [Suspect]
     Active Substance: CHLORHEXIDINE GLUCONATE\ISOPROPYL ALCOHOL
     Indication: Infection prophylaxis
     Dosage: UNK
     Route: 061

REACTIONS (1)
  - Blood culture positive [Unknown]
